FAERS Safety Report 17533108 (Version 3)
Quarter: 2020Q3

REPORT INFORMATION
  Report Type: Spontaneous
  Country: US (occurrence: US)
  Receive Date: 20200312
  Receipt Date: 20200731
  Transmission Date: 20201102
  Serious: Yes (Other)
  Sender: FDA-Public Use
  Company Number: US-BAYER-2020-038046

PATIENT
  Age: 27 Year
  Sex: Female

DRUGS (1)
  1. KYLEENA [Suspect]
     Active Substance: LEVONORGESTREL
     Indication: CONTRACEPTION
     Dosage: 17.5 ?G PER DAY, CONTINUOUSLY
     Route: 015
     Dates: start: 20190312, end: 20200224

REACTIONS (4)
  - Drug ineffective [None]
  - Abortion spontaneous [Recovered/Resolved]
  - Pregnancy with contraceptive device [None]
  - Device dislocation [None]

NARRATIVE: CASE EVENT DATE: 2020
